FAERS Safety Report 15669037 (Version 1)
Quarter: 2018Q4

REPORT INFORMATION
  Report Type: Spontaneous
  Country: US (occurrence: US)
  Receive Date: 20181129
  Receipt Date: 20181129
  Transmission Date: 20190205
  Serious: No
  Sender: FDA-Public Use
  Company Number: US-GLENMARK PHARMACEUTICALS-2018GMK037675

PATIENT

DRUGS (1)
  1. MUPIROCIN. [Suspect]
     Active Substance: MUPIROCIN
     Indication: EPISTAXIS
     Dosage: UNK, OD (AT NIGHT)
     Route: 045
     Dates: start: 20180928, end: 20181001

REACTIONS (5)
  - Rhinalgia [Recovered/Resolved]
  - Product use in unapproved indication [Unknown]
  - Application site pain [Recovered/Resolved]
  - Incorrect route of product administration [Unknown]
  - Sleep disorder [Recovered/Resolved]

NARRATIVE: CASE EVENT DATE: 20180928
